FAERS Safety Report 19303420 (Version 2)
Quarter: 2021Q4

REPORT INFORMATION
  Report Type: Spontaneous
  Country: GB (occurrence: GB)
  Receive Date: 20210525
  Receipt Date: 20211112
  Transmission Date: 20220304
  Serious: Yes (Other)
  Sender: FDA-Public Use
  Company Number: GB-THERAMEX-2021000409

PATIENT
  Age: 56 Year
  Sex: Female

DRUGS (3)
  1. ESTRADIOL [Suspect]
     Active Substance: ESTRADIOL
     Indication: Osteoporosis prophylaxis
  2. ESTRADIOL\NORETHINDRONE ACETATE [Suspect]
     Active Substance: ESTRADIOL\NORETHINDRONE ACETATE
     Indication: Osteoporosis prophylaxis
  3. ESTRADIOL HEMIHYDRATE\LEVONORGESTREL [Suspect]
     Active Substance: ESTRADIOL HEMIHYDRATE\LEVONORGESTREL

REACTIONS (8)
  - Off label use [Unknown]
  - Drug ineffective [Unknown]
  - Headache [Unknown]
  - Skin disorder [Unknown]
  - Somnolence [Unknown]
  - Mood swings [Unknown]
  - Fatigue [Unknown]
  - Off label use [Unknown]
